FAERS Safety Report 13647145 (Version 1)
Quarter: 2017Q2

REPORT INFORMATION
  Report Type: Spontaneous
  Country: US (occurrence: US)
  Receive Date: 20170613
  Receipt Date: 20170613
  Transmission Date: 20170830
  Serious: Yes (Other)
  Sender: FDA-Public Use
  Company Number: None

PATIENT
  Age: 4 Month
  Sex: Male

DRUGS (1)
  1. LIDOCAINE AND PRILOCAINE CREAM [Suspect]
     Active Substance: LIDOCAINE\PRILOCAINE
     Indication: PERIOPERATIVE ANALGESIA
     Route: 061
     Dates: start: 20170419, end: 20170419

REACTIONS (2)
  - Skin irritation [None]
  - Blister [None]

NARRATIVE: CASE EVENT DATE: 20170519
